FAERS Safety Report 8356313-4 (Version None)
Quarter: 2012Q2

REPORT INFORMATION
  Report Type: 
  Country: None (occurrence: None)
  Receive Date: 20120510
  Receipt Date: 20120427
  Transmission Date: 20120825
  Serious: Yes (Life-Threatening)
  Sender: FDA-Public Use
  Company Number: 2012MA005581

PATIENT
  Age: 54 Year
  Sex: Male

DRUGS (8)
  1. DABIGATRAN (DABIGATRAN) [Suspect]
     Indication: THROMBOSIS PROPHYLAXIS
     Dosage: 220 MG;QD;PO
     Route: 048
     Dates: start: 20120327, end: 20120422
  2. SENNA (SENNA ALEXANDRIA) [Suspect]
     Dosage: 7.5 MG;QD;PO
     Route: 048
  3. AMLODIPINE [Suspect]
     Dosage: 10 MG;QD;PO
     Route: 048
  4. DESLORATADINE [Suspect]
     Dosage: 5 MG;QD;PO
     Route: 048
  5. LITHIUM CARBONATE [Suspect]
     Dosage: 400 MG;QD;PO
     Route: 048
  6. FEVERALL [Suspect]
     Dosage: 1 G;QID;PO
     Route: 048
  7. CODEINE SULFATE [Suspect]
     Dosage: 60 MG;QID;PO
     Route: 048
  8. QUETIAPINE FUMARATE [Suspect]
     Dosage: 300 MG;QD;PO
     Route: 048

REACTIONS (1)
  - DEEP VEIN THROMBOSIS [None]
